FAERS Safety Report 11232777 (Version 1)
Quarter: 2015Q3

REPORT INFORMATION
  Report Type: Spontaneous
  Country: FR (occurrence: FR)
  Receive Date: 20150701
  Receipt Date: 20150701
  Transmission Date: 20151125
  Serious: Yes (Life-Threatening, Hospitalization, Other)
  Sender: FDA-Public Use
  Company Number: FR-ASTRAZENECA-2015SE63365

PATIENT
  Age: 27877 Day
  Sex: Female

DRUGS (4)
  1. CRESTOR [Suspect]
     Active Substance: ROSUVASTATIN CALCIUM
     Route: 048
  2. PANTOZOL [Concomitant]
     Active Substance: PANTOPRAZOLE SODIUM
     Route: 048
  3. ASPIRIN CARDIO [Suspect]
     Active Substance: ASPIRIN
     Route: 048
  4. AMLOVASC [Suspect]
     Active Substance: AMLODIPINE BESYLATE
     Dosage: 5 MG, EVERY DAY NON AZ DRUG
     Route: 048

REACTIONS (9)
  - Brain death [Unknown]
  - Embolism [Unknown]
  - Vascular procedure complication [Unknown]
  - Hemiplegia [Unknown]
  - Intracranial pressure increased [Unknown]
  - Arteriosclerosis [Unknown]
  - Glomerular filtration rate decreased [Unknown]
  - Drug ineffective [Unknown]
  - Cerebrovascular accident [Unknown]

NARRATIVE: CASE EVENT DATE: 20150427
